FAERS Safety Report 8318705-9 (Version None)
Quarter: 2012Q1

REPORT INFORMATION
  Report Type: 
  Country: None (occurrence: None)
  Receive Date: 20120315
  Receipt Date: 20110606
  Transmission Date: 20120608
  Serious: Yes (Other)
  Sender: FDA-Public Use
  Company Number: PHHY2011US49700

PATIENT
  Age: 36 Year
  Sex: Female

DRUGS (6)
  1. VITAMINS (NO INGREDIENTS/SUBSTANCES) [Concomitant]
  2. OMEPRAZOLE [Concomitant]
  3. GILENYA [Suspect]
  4. BACLOFEN [Concomitant]
  5. AMBIEN [Concomitant]
  6. VITAMIN D [Concomitant]

REACTIONS (2)
  - CD4 LYMPHOCYTES DECREASED [None]
  - T-LYMPHOCYTE COUNT DECREASED [None]
